FAERS Safety Report 7866137-X (Version None)
Quarter: 2011Q4

REPORT INFORMATION
  Report Type: 
  Country: None (occurrence: None)
  Receive Date: 20111028
  Receipt Date: 20110428
  Transmission Date: 20120403
  Serious: No
  Sender: FDA-Public Use
  Company Number: US-GLAXOSMITHKLINE-A0924943A

PATIENT
  Sex: Female

DRUGS (5)
  1. TOPROL-XL [Concomitant]
  2. SPIRIVA [Concomitant]
  3. ASPIRIN [Concomitant]
  4. ADVAIR DISKUS 100/50 [Suspect]
     Indication: CHRONIC OBSTRUCTIVE PULMONARY DISEASE
     Dosage: 1PUFF TWICE PER DAY
     Route: 055
  5. IBUPROFEN [Concomitant]

REACTIONS (4)
  - TONGUE ULCERATION [None]
  - CONDITION AGGRAVATED [None]
  - OROPHARYNGEAL PAIN [None]
  - DYSGEUSIA [None]
